FAERS Safety Report 8624135-2 (Version None)
Quarter: 2012Q3

REPORT INFORMATION
  Report Type: 
  Country: None (occurrence: None)
  Receive Date: 20120827
  Receipt Date: 20120823
  Transmission Date: 20120928
  Serious: Yes (Hospitalization)
  Sender: FDA-Public Use
  Company Number: US-JNJFOC-20120809370

PATIENT
  Sex: Male
  Weight: 65.77 kg

DRUGS (3)
  1. PREDNISONE TAB [Concomitant]
  2. REMICADE [Suspect]
     Indication: COLITIS ULCERATIVE
     Route: 042
     Dates: start: 20110209, end: 20110324
  3. CLOMIPRAMINE HCL [Concomitant]

REACTIONS (2)
  - COLITIS ULCERATIVE [None]
  - ABDOMINAL PAIN [None]
